FAERS Safety Report 9365325 (Version 1)
Quarter: 2013Q2

REPORT INFORMATION
  Report Type: Report from Study
  Country: US (occurrence: US)
  Receive Date: 20130625
  Receipt Date: 20130625
  Transmission Date: 20140414
  Serious: Yes (Other)
  Sender: FDA-Public Use
  Company Number: US-ROCHE-1240853

PATIENT
  Age: 62 Year
  Sex: Female

DRUGS (3)
  1. HERCEPTIN [Suspect]
     Indication: BREAST CANCER METASTATIC
     Dosage: IN 1L
     Route: 065
  2. PERJETA [Suspect]
     Indication: BREAST CANCER METASTATIC
     Dosage: IN 2L
     Route: 065
  3. KADCYLA [Suspect]
     Indication: BREAST CANCER METASTATIC
     Dosage: IN 3L
     Route: 065

REACTIONS (1)
  - Febrile neutropenia [Unknown]
